FAERS Safety Report 21377381 (Version 1)
Quarter: 2022Q3

REPORT INFORMATION
  Report Type: Spontaneous
  Country: US (occurrence: None)
  Receive Date: 20220923
  Receipt Date: 20220923
  Transmission Date: 20221027
  Serious: Yes (Hospitalization)
  Sender: FDA-Public Use
  Company Number: None

PATIENT
  Age: 55 Year
  Sex: Male
  Weight: 64.8 kg

DRUGS (4)
  1. CARBOPLATIN [Suspect]
     Active Substance: CARBOPLATIN
     Dates: end: 20220907
  2. ETOPOSIDE [Suspect]
     Active Substance: ETOPOSIDE
     Dates: end: 20220907
  3. IFOSFAMIDE [Suspect]
     Active Substance: IFOSFAMIDE
     Dates: end: 20220821
  4. TAXOL [Suspect]
     Active Substance: PACLITAXEL
     Dates: end: 20220819

REACTIONS (6)
  - Malignant neoplasm progression [None]
  - Chills [None]
  - Diarrhoea [None]
  - Haemoglobin decreased [None]
  - Platelet count decreased [None]
  - Febrile neutropenia [None]

NARRATIVE: CASE EVENT DATE: 20220913
